FAERS Safety Report 12542093 (Version 1)
Quarter: 2016Q3

REPORT INFORMATION
  Report Type: Spontaneous
  Country: US (occurrence: US)
  Receive Date: 20160708
  Receipt Date: 20160708
  Transmission Date: 20161109
  Serious: Yes (Death)
  Sender: FDA-Public Use
  Company Number: PHEH2016US016792

PATIENT
  Age: 64 Year
  Sex: Male

DRUGS (1)
  1. PROMACTA [Suspect]
     Active Substance: ELTROMBOPAG OLAMINE
     Indication: ESSENTIAL THROMBOCYTHAEMIA
     Dosage: 1 DF, QD
     Route: 048
     Dates: start: 20160402, end: 20160503

REACTIONS (1)
  - Death [Fatal]

NARRATIVE: CASE EVENT DATE: 20160513
